FAERS Safety Report 9642852 (Version 3)
Quarter: 2014Q1

REPORT INFORMATION
  Report Type: Spontaneous
  Country: GB (occurrence: GB)
  Receive Date: 20131024
  Receipt Date: 20140307
  Transmission Date: 20141002
  Serious: Yes (Other)
  Sender: FDA-Public Use
  Company Number: PHFR2012GB005507

PATIENT
  Age: 35 Year
  Sex: Male

DRUGS (2)
  1. CLOZARIL [Suspect]
     Indication: SCHIZOPHRENIA
     Dosage: 450 MG, DAILY
     Route: 048
     Dates: start: 20071211
  2. ZOPICLONE [Concomitant]
     Indication: INSOMNIA
     Dosage: 15 MG, DAILY
     Route: 048

REACTIONS (2)
  - Polycythaemia vera [Not Recovered/Not Resolved]
  - Haemoglobin increased [Not Recovered/Not Resolved]
